FAERS Safety Report 15648182 (Version 3)
Quarter: 2018Q4

REPORT INFORMATION
  Report Type: Spontaneous
  Country: US (occurrence: US)
  Receive Date: 20181122
  Receipt Date: 20181210
  Transmission Date: 20190205
  Serious: Yes (Hospitalization, Other)
  Sender: FDA-Public Use
  Company Number: US-AMGEN-USASP2018165967

PATIENT
  Age: 38 Year
  Sex: Female
  Weight: 110.66 kg

DRUGS (1)
  1. AIMOVIG [Suspect]
     Active Substance: ERENUMAB-AOOE
     Indication: MIGRAINE
     Dosage: 70 MG, QMO
     Route: 058
     Dates: start: 20181101, end: 20181101

REACTIONS (1)
  - Rubber sensitivity [Recovered/Resolved]

NARRATIVE: CASE EVENT DATE: 20181101
